FAERS Safety Report 9487382 (Version 1)
Quarter: 2013Q3

REPORT INFORMATION
  Report Type: Spontaneous
  Country: CA (occurrence: CA)
  Receive Date: 20130829
  Receipt Date: 20130829
  Transmission Date: 20140515
  Serious: Yes (Hospitalization)
  Sender: FDA-Public Use
  Company Number: CA-AMGEN-KDL359668

PATIENT
  Age: 47 Year
  Sex: Female
  Weight: 114 kg

DRUGS (8)
  1. ENBREL [Suspect]
     Indication: RHEUMATOID ARTHRITIS
     Dosage: UNK UNK, 2 TIMES/WK
     Route: 065
     Dates: start: 20040923, end: 20090716
  2. VENLAFAXINE [Concomitant]
     Dosage: UNK UNK, UNK
  3. ESOMEPRAZOLE MAGNESIUM [Concomitant]
     Dosage: 20 MG, UNK
  4. CALTRATE PLUS [Concomitant]
     Dosage: UNK UNK, UNK
  5. FOLIC ACID [Concomitant]
     Dosage: UNK UNK, UNK
  6. PREDNISONE [Concomitant]
     Dosage: 5 MG, BID
     Route: 048
  7. AMILORIDE [Concomitant]
     Dosage: UNK UNK, UNK
  8. METHOTREXATE [Concomitant]
     Dosage: UNK UNK, QD
     Route: 048

REACTIONS (2)
  - Guillain-Barre syndrome [Unknown]
  - Walking aid user [Unknown]
